FAERS Safety Report 8867894 (Version 1)
Quarter: 2012Q4

REPORT INFORMATION
  Report Type: 
  Country: US (occurrence: US)
  Receive Date: 20121026
  Receipt Date: 20121026
  Transmission Date: 20130627
  Serious: No
  Sender: FDA-Public Use
  Company Number: US-AMGEN-USASP2012040910

PATIENT
  Age: 77 Year
  Sex: Male
  Weight: 81.63 kg

DRUGS (6)
  1. ENBREL [Suspect]
     Indication: PRODUCT USED FOR UNKNOWN INDICATION
     Dosage: 50 mg, qwk
     Route: 058
  2. PREDNISON [Concomitant]
     Dosage: 1 mg, UNK
  3. DIOVAN [Concomitant]
     Dosage: 40 mg, UNK
  4. HYDROCHLOROTH [Concomitant]
     Dosage: 12.5 mg, UNK
  5. METOPROLOL [Concomitant]
     Dosage: 25 mg, UNK
  6. ALLOPURINOL [Concomitant]
     Dosage: 100 mg, UNK

REACTIONS (4)
  - Condition aggravated [Unknown]
  - Injection site haemorrhage [Unknown]
  - Injection site bruising [Unknown]
  - Injection site discolouration [Unknown]
